FAERS Safety Report 12973101 (Version 7)
Quarter: 2018Q3

REPORT INFORMATION
  Report Type: Spontaneous
  Country: US (occurrence: US)
  Receive Date: 20161124
  Receipt Date: 20180718
  Transmission Date: 20181010
  Serious: Yes (Life-Threatening, Other)
  Sender: FDA-Public Use
  Company Number: US-BIOGEN-2016BI00320950

PATIENT
  Sex: Female

DRUGS (4)
  1. AVONEX [Suspect]
     Active Substance: INTERFERON BETA-1A
     Indication: MULTIPLE SCLEROSIS
     Route: 030
     Dates: start: 20150417
  2. AVONEX [Suspect]
     Active Substance: INTERFERON BETA-1A
     Route: 030
     Dates: start: 2015
  3. AVONEX [Suspect]
     Active Substance: INTERFERON BETA-1A
     Route: 030
  4. AVONEX [Suspect]
     Active Substance: INTERFERON BETA-1A
     Route: 030
     Dates: start: 20150514

REACTIONS (16)
  - Memory impairment [Not Recovered/Not Resolved]
  - Mobility decreased [Recovered/Resolved]
  - Terminal state [Not Recovered/Not Resolved]
  - Dysphagia [Not Recovered/Not Resolved]
  - Central nervous system lesion [Not Recovered/Not Resolved]
  - Cognitive disorder [Not Recovered/Not Resolved]
  - Pain in extremity [Not Recovered/Not Resolved]
  - Fall [Recovered/Resolved]
  - Gait disturbance [Not Recovered/Not Resolved]
  - Fistula [Unknown]
  - Psoriasis [Unknown]
  - Seizure [Not Recovered/Not Resolved]
  - Fear of death [Not Recovered/Not Resolved]
  - Fear [Not Recovered/Not Resolved]
  - Speech disorder [Not Recovered/Not Resolved]
  - Head injury [Recovered/Resolved]

NARRATIVE: CASE EVENT DATE: 2017
